FAERS Safety Report 7410851-7 (Version None)
Quarter: 2011Q2

REPORT INFORMATION
  Report Type: 
  Country: None (occurrence: None)
  Receive Date: 20110413
  Receipt Date: 20110408
  Transmission Date: 20111010
  Serious: No
  Sender: FDA-Public Use
  Company Number: US-PFIZER INC-2011067307

PATIENT
  Sex: Female

DRUGS (2)
  1. ADVIL LIQUI-GELS [Suspect]
     Indication: NECK PAIN
     Dosage: UNK
     Route: 048
  2. ADVIL LIQUI-GELS [Suspect]
     Indication: MUSCULOSKELETAL PAIN

REACTIONS (1)
  - DRUG INEFFECTIVE [None]
